FAERS Safety Report 24996376 (Version 1)
Quarter: 2025Q1

REPORT INFORMATION
  Report Type: Spontaneous
  Country: JP (occurrence: JP)
  Receive Date: 20250221
  Receipt Date: 20250221
  Transmission Date: 20250408
  Serious: Yes (Other)
  Sender: EISAI
  Company Number: JP-Eisai-EC-2025-184357

PATIENT
  Age: 52 Year
  Sex: Female

DRUGS (1)
  1. RABEPRAZOLE SODIUM [Suspect]
     Active Substance: RABEPRAZOLE SODIUM
     Indication: Product used for unknown indication
     Route: 048
     Dates: start: 202402, end: 202402

REACTIONS (1)
  - Tubulointerstitial nephritis [Unknown]

NARRATIVE: CASE EVENT DATE: 20240201
